FAERS Safety Report 5904084-0 (Version None)
Quarter: 2008Q3

REPORT INFORMATION
  Report Type: 
  Country: None (occurrence: None)
  Receive Date: 20080930
  Receipt Date: 20080925
  Transmission Date: 20090109
  Serious: Yes (Other)
  Sender: FDA-Public Use
  Company Number: US-JNJCH-2008025073

PATIENT
  Age: 60 Year
  Sex: Female
  Weight: 72.6 kg

DRUGS (1)
  1. BENADRYL [Suspect]
     Indication: HYPERSENSITIVITY
     Dosage: TEXT:1 TO 2 KAPSEALS EVERY 4 HOURS
     Route: 048
     Dates: start: 20080924, end: 20080925

REACTIONS (3)
  - DYSPHAGIA [None]
  - NASAL CONGESTION [None]
  - THROAT TIGHTNESS [None]
